FAERS Safety Report 22734047 (Version 2)
Quarter: 2024Q1

REPORT INFORMATION
  Report Type: Spontaneous
  Country: CA (occurrence: CA)
  Receive Date: 20230721
  Receipt Date: 20240119
  Transmission Date: 20240410
  Serious: Yes (Death, Life-Threatening, Hospitalization, Other)
  Sender: FDA-Public Use
  Company Number: CA-SA-2020SA323545

PATIENT
  Age: 72 Year
  Sex: Female
  Weight: 61 kg

DRUGS (56)
  1. DULCOLAX STIMULANT LAXATIVE [Suspect]
     Active Substance: BISACODYL
     Indication: Product used for unknown indication
     Dosage: DOSE DESCRIPTION : 5 MG
     Route: 048
  2. DULCOLAX STIMULANT LAXATIVE [Suspect]
     Active Substance: BISACODYL
     Dosage: DOSE DESCRIPTION : 0.5 MG
     Route: 048
  3. DULCOLAX STIMULANT LAXATIVE [Suspect]
     Active Substance: BISACODYL
     Route: 048
  4. PREVACID [Suspect]
     Active Substance: LANSOPRAZOLE
     Indication: Product used for unknown indication
     Dosage: UNK
     Route: 065
  5. PREVACID [Suspect]
     Active Substance: LANSOPRAZOLE
     Dosage: DOSE DESCRIPTION : 30 MG, BID
     Route: 048
  6. PREVACID [Suspect]
     Active Substance: LANSOPRAZOLE
     Dosage: DOSE DESCRIPTION : 30 MG, BID
     Route: 048
  7. PREVACID [Suspect]
     Active Substance: LANSOPRAZOLE
     Dosage: UNK
     Route: 065
  8. MELATONIN [Suspect]
     Active Substance: MELATONIN
     Indication: Product used for unknown indication
     Dosage: DOSE DESCRIPTION : 3 MG, QD
     Route: 060
  9. MELATONIN [Suspect]
     Active Substance: MELATONIN
     Dosage: DOSE DESCRIPTION : UNK
     Route: 065
  10. POLYETHYLENE GLYCOL 3350 [Suspect]
     Active Substance: POLYETHYLENE GLYCOL 3350
     Indication: Product used for unknown indication
     Dosage: DOSE DESCRIPTION : 17 G, QD
     Route: 048
  11. POLYETHYLENE GLYCOL 3350 [Suspect]
     Active Substance: POLYETHYLENE GLYCOL 3350
     Dosage: DOSE DESCRIPTION : UNK
     Route: 065
  12. POLYETHYLENE GLYCOL 3350 [Suspect]
     Active Substance: POLYETHYLENE GLYCOL 3350
     Dosage: DOSE DESCRIPTION : 17 G, QD
     Route: 048
  13. ONDANSETRON [Suspect]
     Active Substance: ONDANSETRON
     Indication: Product used for unknown indication
     Dosage: 4 MILLIGRAM
     Route: 060
  14. BUPROPION [Suspect]
     Active Substance: BUPROPION
     Indication: Product used for unknown indication
     Dosage: DOSE DESCRIPTION : 150 MG, QD
     Route: 048
  15. BUPROPION [Suspect]
     Active Substance: BUPROPION
     Dosage: DOSE DESCRIPTION : UNK
     Route: 065
  16. BUPROPION [Suspect]
     Active Substance: BUPROPION
     Dosage: DOSE DESCRIPTION : 150 MG, QD
     Route: 048
  17. CLONAZEPAM [Suspect]
     Active Substance: CLONAZEPAM
     Indication: Product used for unknown indication
     Dosage: DOSE DESCRIPTION : 0.25 MG
     Route: 048
  18. CLONAZEPAM [Suspect]
     Active Substance: CLONAZEPAM
     Dosage: DOSE DESCRIPTION : UNK
     Route: 065
  19. LINACLOTIDE [Suspect]
     Active Substance: LINACLOTIDE
     Indication: Irritable bowel syndrome
     Dosage: DOSE DESCRIPTION : 145 UG, QD
     Route: 048
  20. LINACLOTIDE [Suspect]
     Active Substance: LINACLOTIDE
     Dosage: DOSE DESCRIPTION : UNK
     Route: 065
  21. SODIUM LAURYL SULFOACETATE [Suspect]
     Active Substance: SODIUM LAURYL SULFOACETATE
     Indication: Product used for unknown indication
     Dosage: DOSE DESCRIPTION : UNK
     Route: 065
  22. SODIUM LAURYL SULFOACETATE [Suspect]
     Active Substance: SODIUM LAURYL SULFOACETATE
     Dosage: DOSE DESCRIPTION : 1 DF
     Route: 054
  23. SODIUM LAURYL SULFOACETATE [Suspect]
     Active Substance: SODIUM LAURYL SULFOACETATE
     Dosage: DOSE DESCRIPTION : UNK
     Route: 065
  24. SODIUM CITRATE [Suspect]
     Active Substance: SODIUM CITRATE
     Indication: Product used for unknown indication
     Dosage: DOSE DESCRIPTION : UNK
     Route: 065
  25. POTASSIUM CHLORIDE [Suspect]
     Active Substance: POTASSIUM CHLORIDE
     Indication: Product used for unknown indication
     Dosage: DOSE DESCRIPTION : UNK
     Route: 065
  26. POTASSIUM CHLORIDE [Suspect]
     Active Substance: POTASSIUM CHLORIDE
     Dosage: DOSE DESCRIPTION : UNK
     Route: 065
  27. POTASSIUM CHLORIDE [Suspect]
     Active Substance: POTASSIUM CHLORIDE
     Dosage: DOSE DESCRIPTION : 2 DF, QD, 1 DOSAGE FORM, BID
     Route: 048
  28. POTASSIUM CHLORIDE [Suspect]
     Active Substance: POTASSIUM CHLORIDE
     Dosage: DOSE DESCRIPTION : UNK
     Route: 065
  29. POTASSIUM CHLORIDE [Suspect]
     Active Substance: POTASSIUM CHLORIDE
     Dosage: DOSE DESCRIPTION : 2 DF, QD, 1 DOSAGE FORM, BID
     Route: 048
  30. LAMOTRIGINE [Suspect]
     Active Substance: LAMOTRIGINE
     Indication: Product used for unknown indication
     Dosage: DOSE DESCRIPTION : 75 MG, QD
     Route: 048
  31. LAMOTRIGINE [Suspect]
     Active Substance: LAMOTRIGINE
     Dosage: DOSE DESCRIPTION : UNK
     Route: 065
  32. BENZTROPINE [Suspect]
     Active Substance: BENZTROPINE
     Indication: Product used for unknown indication
     Dosage: DOSE DESCRIPTION : 0.5 MG, BID
     Route: 048
  33. BENZTROPINE [Suspect]
     Active Substance: BENZTROPINE
     Dosage: DOSE DESCRIPTION : UNK
     Route: 065
  34. BENZTROPINE [Suspect]
     Active Substance: BENZTROPINE
     Dosage: DOSE DESCRIPTION : UNK
     Route: 065
  35. BENZTROPINE [Suspect]
     Active Substance: BENZTROPINE
     Dosage: DOSE DESCRIPTION : 0.5 MG, BID
     Route: 048
  36. PREMARIN [Suspect]
     Active Substance: ESTROGENS, CONJUGATED
     Indication: Product used for unknown indication
     Dosage: DOSE DESCRIPTION : 0.625 MG, QD
     Route: 067
  37. PREMARIN [Suspect]
     Active Substance: ESTROGENS, CONJUGATED
     Dosage: DOSE DESCRIPTION : UNK
     Route: 065
  38. FLOVENT HFA [Suspect]
     Active Substance: FLUTICASONE PROPIONATE
     Indication: Product used for unknown indication
     Dosage: DOSE DESCRIPTION : 500 MG
     Route: 055
  39. FLOVENT HFA [Suspect]
     Active Substance: FLUTICASONE PROPIONATE
     Dosage: DOSE DESCRIPTION : 250 MG, BID
     Route: 055
  40. FLOVENT HFA [Suspect]
     Active Substance: FLUTICASONE PROPIONATE
     Dosage: DOSE DESCRIPTION : 250 MG, BID
     Route: 055
  41. FLOVENT HFA [Suspect]
     Active Substance: FLUTICASONE PROPIONATE
     Dosage: DOSE DESCRIPTION : 500 UG, QD, 250 MICROGRAM, BID
     Route: 055
  42. FLOVENT HFA [Suspect]
     Active Substance: FLUTICASONE PROPIONATE
     Dosage: DOSE DESCRIPTION : UNK
     Route: 065
  43. FLOVENT HFA [Suspect]
     Active Substance: FLUTICASONE PROPIONATE
     Dosage: DOSE DESCRIPTION : 500 UG, QD, 250 MICROGRAM, BID
     Route: 055
  44. FLOVENT HFA [Suspect]
     Active Substance: FLUTICASONE PROPIONATE
     Dosage: DOSE DESCRIPTION : 500 UG, QD, 250 MICROGRAM, BID
     Route: 055
  45. FLOVENT HFA [Suspect]
     Active Substance: FLUTICASONE PROPIONATE
     Dosage: DOSE DESCRIPTION : UNK
     Route: 065
  46. SYNTHROID [Suspect]
     Active Substance: LEVOTHYROXINE SODIUM
     Indication: Product used for unknown indication
     Dosage: DOSE DESCRIPTION : UNK
     Route: 048
  47. SYNTHROID [Suspect]
     Active Substance: LEVOTHYROXINE SODIUM
     Dosage: DOSE DESCRIPTION : UNK
     Route: 048
  48. SYNTHROID [Suspect]
     Active Substance: LEVOTHYROXINE SODIUM
     Dosage: DOSE DESCRIPTION : UNK
     Route: 065
  49. SYNTHROID [Suspect]
     Active Substance: LEVOTHYROXINE SODIUM
     Dosage: DOSE DESCRIPTION : UNK
     Route: 048
  50. BENZTROPINE MESYLATE [Suspect]
     Active Substance: BENZTROPINE MESYLATE
     Indication: Product used for unknown indication
     Route: 048
  51. BENZTROPINE MESYLATE [Suspect]
     Active Substance: BENZTROPINE MESYLATE
     Route: 048
  52. BENZTROPINE MESYLATE [Suspect]
     Active Substance: BENZTROPINE MESYLATE
     Route: 065
  53. BUPROPION HYDROCHLORIDE [Suspect]
     Active Substance: BUPROPION HYDROCHLORIDE
     Indication: Product used for unknown indication
     Route: 048
  54. BUPROPION HYDROCHLORIDE [Suspect]
     Active Substance: BUPROPION HYDROCHLORIDE
     Route: 048
  55. ONDANSETRON HYDROCHLORIDE [Suspect]
     Active Substance: ONDANSETRON HYDROCHLORIDE
     Indication: Product used for unknown indication
     Dosage: 4 MILLIGRAM
     Route: 065
  56. ONDANSETRON HYDROCHLORIDE [Suspect]
     Active Substance: ONDANSETRON HYDROCHLORIDE
     Dosage: 4 MILLIGRAM
     Route: 060

REACTIONS (2)
  - Death [Fatal]
  - Cardiac arrest [Fatal]
